FAERS Safety Report 15012998 (Version 1)
Quarter: 2018Q2

REPORT INFORMATION
  Report Type: Spontaneous
  Country: US (occurrence: US)
  Receive Date: 20180614
  Receipt Date: 20180614
  Transmission Date: 20180711
  Serious: No
  Sender: FDA-Public Use
  Company Number: US-DUSA PHARMACEUTICALS, INC.-2049442

PATIENT
  Age: 67 Year
  Sex: Male

DRUGS (4)
  1. LEVULAN KERASTICK [Suspect]
     Active Substance: AMINOLEVULINIC ACID HYDROCHLORIDE
     Indication: ACTINIC KERATOSIS
     Route: 061
     Dates: start: 20180409, end: 20180409
  2. LEVULAN KERASTICK [Suspect]
     Active Substance: AMINOLEVULINIC ACID HYDROCHLORIDE
     Route: 061
     Dates: start: 20180410, end: 20180410
  3. PREDNISONE. [Concomitant]
     Active Substance: PREDNISONE
     Route: 065
  4. DEXAMETHASONE. [Concomitant]
     Active Substance: DEXAMETHASONE
     Route: 065

REACTIONS (9)
  - Application site swelling [Recovering/Resolving]
  - Blister [Recovered/Resolved]
  - Off label use [Unknown]
  - Dizziness [Unknown]
  - Hallucination [Recovering/Resolving]
  - Wrong technique in product usage process [Unknown]
  - Dehydration [Recovering/Resolving]
  - Dyspnoea [Unknown]
  - Dizziness [Recovering/Resolving]

NARRATIVE: CASE EVENT DATE: 201804
